FAERS Safety Report 16353005 (Version 3)
Quarter: 2019Q2

REPORT INFORMATION
  Report Type: Report from Study
  Country: CN (occurrence: CN)
  Receive Date: 20190524
  Receipt Date: 20190619
  Transmission Date: 20190711
  Serious: Yes (Other)
  Sender: FDA-Public Use
  Company Number: PHHY2016CN043194

PATIENT
  Age: 42 Year
  Sex: Male

DRUGS (49)
  1. MYFORTIC [Suspect]
     Active Substance: MYCOPHENOLATE SODIUM
     Dosage: 540 MG, BID
     Route: 065
     Dates: start: 20151130
  2. PREDNISOLONE ACETATE. [Suspect]
     Active Substance: PREDNISOLONE ACETATE
     Indication: PROPHYLAXIS AGAINST TRANSPLANT REJECTION
     Dosage: 30 MG, QD
     Route: 065
     Dates: start: 20151130
  3. TACROLIMUS. [Suspect]
     Active Substance: TACROLIMUS
     Indication: PROPHYLAXIS AGAINST TRANSPLANT REJECTION
     Dosage: 6 MG, QD
     Route: 065
     Dates: start: 20151126, end: 20151126
  4. FRUCTOSE [Concomitant]
     Active Substance: FRUCTOSE
     Dosage: 500 ML, ONCE/SINGLE
     Route: 042
     Dates: start: 20151128, end: 20151128
  5. POTASSIUM CHLORIDE. [Concomitant]
     Active Substance: POTASSIUM CHLORIDE
     Indication: MINERAL SUPPLEMENTATION
     Dosage: 1 G, TID
     Route: 048
     Dates: start: 20151130, end: 20151130
  6. LACTATED RINGERS SOLUTION [Concomitant]
     Active Substance: CALCIUM CHLORIDE\POTASSIUM CHLORIDE\SODIUM CHLORIDE\SODIUM LACTATE
     Dosage: 500 ML, QD
     Route: 042
     Dates: start: 20151128, end: 20151128
  7. SODIUM BICARBONATE. [Concomitant]
     Active Substance: SODIUM BICARBONATE
     Indication: PROPHYLAXIS
     Dosage: UNK
  8. ALANYL GLUTAMINE [Concomitant]
     Active Substance: ALANYL GLUTAMINE
     Dosage: 30 G, ONCE/SINGLE
     Route: 042
     Dates: start: 20151127, end: 20151127
  9. MYFORTIC [Suspect]
     Active Substance: MYCOPHENOLATE SODIUM
     Indication: RENAL TRANSPLANT
     Dosage: 1440 MG, QD
     Route: 065
     Dates: start: 20151126, end: 20151126
  10. METHYLPREDNISOLONE. [Suspect]
     Active Substance: METHYLPREDNISOLONE
     Dosage: 1000 MG, QD
     Route: 065
     Dates: start: 20151126, end: 20151126
  11. PROPOFOL. [Concomitant]
     Active Substance: PROPOFOL
     Dosage: 0.5 G, ONCE/SINGLE
     Route: 042
     Dates: start: 20151127, end: 20151127
  12. NIFEDIPINE. [Concomitant]
     Active Substance: NIFEDIPINE
     Indication: BLOOD PRESSURE INCREASED
     Dosage: 10 MG, ONCE/SINGLE
     Route: 048
     Dates: start: 20151128, end: 20151128
  13. ALANYL GLUTAMINE [Concomitant]
     Active Substance: ALANYL GLUTAMINE
     Indication: SUPPLEMENTATION THERAPY
     Dosage: 20 G, ONCE/SINGLE
     Route: 042
     Dates: start: 20151126, end: 20161126
  14. BASILIXIMAB [Suspect]
     Active Substance: BASILIXIMAB
     Indication: PROPHYLAXIS AGAINST TRANSPLANT REJECTION
     Dosage: 20 MG, QD
     Route: 065
     Dates: start: 20151125, end: 20151125
  15. TACROLIMUS. [Suspect]
     Active Substance: TACROLIMUS
     Dosage: 4 MG, QD
     Route: 065
     Dates: start: 20151201
  16. BETALOC [Concomitant]
     Active Substance: METOPROLOL TARTRATE
     Indication: HEART RATE ABNORMAL
     Dosage: 25 MG, ONCE/SINGLE
     Route: 048
     Dates: start: 20151127, end: 20151127
  17. INSULIN [Concomitant]
     Active Substance: INSULIN NOS
     Indication: BLOOD GLUCOSE ABNORMAL
     Dosage: 6 IU, ONCE/SINGLE
     Route: 042
     Dates: start: 20151125, end: 20151129
  18. GANCICLOVIR. [Concomitant]
     Active Substance: GANCICLOVIR
     Indication: ANTIVIRAL TREATMENT
     Dosage: 0.25 G, BID
     Route: 042
     Dates: start: 20151126
  19. MYFORTIC [Suspect]
     Active Substance: MYCOPHENOLATE SODIUM
     Dosage: 720 MG, BID
     Route: 065
     Dates: start: 20151127, end: 20151130
  20. FRUCTOSE [Concomitant]
     Active Substance: FRUCTOSE
     Indication: FLUID REPLACEMENT
     Dosage: 500 ML, ONCE/SINGLE
     Route: 042
     Dates: start: 20151127, end: 20151127
  21. POTASSIUM CHLORIDE. [Concomitant]
     Active Substance: POTASSIUM CHLORIDE
     Indication: MINERAL SUPPLEMENTATION
     Dosage: 1 G, ONCE/SINGLE
     Route: 042
     Dates: start: 20151125, end: 20151125
  22. ANDROGRAPHOLIDE [Concomitant]
     Active Substance: ANDROGRAPHOLIDE
     Indication: DIARRHOEA
     Dosage: 14 ML, ONCE/SINGLE
     Route: 042
     Dates: start: 20151126, end: 20151126
  23. LANSOPRAZOLE. [Concomitant]
     Active Substance: LANSOPRAZOLE
     Indication: PROPHYLAXIS
     Dosage: 30 MG, BID
     Route: 042
     Dates: start: 20151127
  24. FUROSEMIDE. [Concomitant]
     Active Substance: FUROSEMIDE
     Indication: POLYURIA
     Dosage: 20 MG, TID
     Route: 048
     Dates: start: 20151201
  25. METHYLPREDNISOLONE. [Suspect]
     Active Substance: METHYLPREDNISOLONE
     Dosage: 750 MG, QD
     Route: 065
     Dates: start: 20151128, end: 20151128
  26. TACROLIMUS. [Suspect]
     Active Substance: TACROLIMUS
     Dosage: 6 MG, QD
     Route: 065
     Dates: start: 20151127, end: 20151130
  27. ZOLPIDEM [Concomitant]
     Active Substance: ZOLPIDEM\ZOLPIDEM TARTRATE
     Dosage: 10 MG, UNK
     Route: 048
     Dates: start: 20151127
  28. POTASSIUM CHLORIDE. [Concomitant]
     Active Substance: POTASSIUM CHLORIDE
     Dosage: 10 ML, BID
     Route: 042
     Dates: start: 20151128, end: 20151128
  29. POTASSIUM CHLORIDE. [Concomitant]
     Active Substance: POTASSIUM CHLORIDE
     Dosage: 10 ML, BID
     Route: 042
     Dates: start: 20151129, end: 20151129
  30. ROCEPHIN [Concomitant]
     Active Substance: CEFTRIAXONE SODIUM
     Indication: ANTI-INFECTIVE THERAPY
     Dosage: 2 G, QD
     Route: 042
     Dates: start: 20151125
  31. OMEPRAZOLE. [Concomitant]
     Active Substance: OMEPRAZOLE
     Indication: PROPHYLAXIS AGAINST GASTROINTESTINAL ULCER
     Dosage: 40 MG, QD
     Route: 041
     Dates: start: 20151125
  32. ALANYL GLUTAMINE [Concomitant]
     Active Substance: ALANYL GLUTAMINE
     Dosage: 20 G, QD
     Route: 042
     Dates: start: 20151128
  33. TORASEMIDE [Concomitant]
     Active Substance: TORSEMIDE
     Indication: POLYURIA
     Dosage: 20 MG, TID
     Route: 042
     Dates: start: 20151126
  34. METHYLPREDNISOLONE. [Suspect]
     Active Substance: METHYLPREDNISOLONE
     Indication: PROPHYLAXIS AGAINST TRANSPLANT REJECTION
     Dosage: 1000 MG, QD
     Route: 065
     Dates: start: 20151125, end: 20151125
  35. ADALAT CC [Concomitant]
     Active Substance: NIFEDIPINE
     Indication: BLOOD PRESSURE INCREASED
     Dosage: 30 MG, BID
     Route: 048
     Dates: start: 20151127
  36. ZOLPIDEM [Concomitant]
     Active Substance: ZOLPIDEM\ZOLPIDEM TARTRATE
     Indication: INSOMNIA
     Dosage: 10 MG, ONCE/SINGLE
     Route: 048
     Dates: start: 20151126
  37. METHYLPREDNISOLONE. [Suspect]
     Active Substance: METHYLPREDNISOLONE
     Dosage: 250 MG, QD
     Route: 065
     Dates: start: 20151128, end: 20151128
  38. METHYLPREDNISOLONE. [Suspect]
     Active Substance: METHYLPREDNISOLONE
     Dosage: 250 MG, QD
     Route: 065
     Dates: start: 20151130, end: 20151130
  39. HEPARIN SODIUM. [Concomitant]
     Active Substance: HEPARIN SODIUM
     Indication: PRODUCT USED FOR UNKNOWN INDICATION
     Dosage: 12.5 KIU, QD
     Route: 061
     Dates: start: 20151125
  40. ZOLPIDEM [Concomitant]
     Active Substance: ZOLPIDEM\ZOLPIDEM TARTRATE
     Dosage: 70 MG, ONCE/SINGLE
     Route: 048
     Dates: start: 20151127, end: 20151127
  41. SODIUM BICARBONATE. [Concomitant]
     Active Substance: SODIUM BICARBONATE
     Indication: ACID BASE BALANCE
     Dosage: 125 ML, ONCE/SINGLE
     Route: 042
     Dates: start: 20151126, end: 20151129
  42. METHYLPREDNISOLONE. [Suspect]
     Active Substance: METHYLPREDNISOLONE
     Dosage: 500 MG, QD
     Route: 065
     Dates: start: 20151127, end: 20151127
  43. PROPOFOL. [Concomitant]
     Active Substance: PROPOFOL
     Indication: INDUCTION OF ANAESTHESIA
     Dosage: 0.5 MG, ONCE/SINGLE
     Route: 042
     Dates: start: 20151125, end: 20151125
  44. POTASSIUM CHLORIDE. [Concomitant]
     Active Substance: POTASSIUM CHLORIDE
     Dosage: 10 ML, ONCE/SINGLE
     Route: 042
     Dates: start: 20151126, end: 20151126
  45. LACTATED RINGERS SOLUTION [Concomitant]
     Active Substance: CALCIUM CHLORIDE\POTASSIUM CHLORIDE\SODIUM CHLORIDE\SODIUM LACTATE
     Indication: ELECTROLYTE IMBALANCE
     Dosage: 500 ML, TID
     Route: 042
     Dates: start: 20151125, end: 20151127
  46. LACTATED RINGERS SOLUTION [Concomitant]
     Active Substance: CALCIUM CHLORIDE\POTASSIUM CHLORIDE\SODIUM CHLORIDE\SODIUM LACTATE
     Dosage: 500 ML, TID
     Route: 042
     Dates: start: 20151129, end: 20151129
  47. URAPIDIL HYDROCHLORIDE [Concomitant]
     Active Substance: URAPIDIL HYDROCHLORIDE
     Indication: BLOOD PRESSURE INCREASED
     Dosage: 250 MG, ONCE/SINGLE
     Route: 042
     Dates: start: 20151125, end: 20151126
  48. ANDROGRAPHOLIDE [Concomitant]
     Active Substance: ANDROGRAPHOLIDE
     Indication: COUGH
  49. AMBROXOL HYDROCHLORIDE [Concomitant]
     Active Substance: AMBROXOL HYDROCHLORIDE
     Indication: SPUTUM RETENTION
     Dosage: 15 MG, TID
     Route: 055
     Dates: start: 20151126

REACTIONS (2)
  - Loss of consciousness [Recovered/Resolved]
  - Mental disorder [Recovered/Resolved]

NARRATIVE: CASE EVENT DATE: 20151126
